FAERS Safety Report 4970158-4 (Version None)
Quarter: 2006Q2

REPORT INFORMATION
  Report Type: 
  Country: None (occurrence: None)
  Receive Date: 20060406
  Receipt Date: 20060325
  Transmission Date: 20061013
  Serious: Yes (Other)
  Sender: FDA-Public Use
  Company Number: 2006041863

PATIENT
  Age: 52 Year
  Sex: Female
  Weight: 63.5036 kg

DRUGS (3)
  1. LYRICA [Suspect]
     Indication: PAIN IN EXTREMITY
     Dosage: 75 MG (75 MG, 1 IN 1 D), ORAL
     Route: 048
     Dates: start: 20060322, end: 20060325
  2. FLEXERIL [Concomitant]
  3. NAPROSYN [Concomitant]

REACTIONS (9)
  - CARDIAC ARREST [None]
  - CHOKING [None]
  - CONVULSION [None]
  - DYSPNOEA [None]
  - EMOTIONAL DISTRESS [None]
  - LOSS OF CONSCIOUSNESS [None]
  - OBSTRUCTIVE AIRWAYS DISORDER [None]
  - THROAT TIGHTNESS [None]
  - VOMITING [None]
